FAERS Safety Report 6074099-3 (Version None)
Quarter: 2009Q1

REPORT INFORMATION
  Report Type: 
  Country: None (occurrence: None)
  Receive Date: 20090211
  Receipt Date: 20090206
  Transmission Date: 20090719
  Serious: Yes (Hospitalization)
  Sender: FDA-Public Use
  Company Number: B0543792A

PATIENT
  Age: 67 Year
  Sex: Male

DRUGS (12)
  1. SERETIDE [Suspect]
     Indication: ASTHMA
     Dosage: 500MCG TWICE PER DAY
     Route: 055
     Dates: start: 20080128
  2. NU-LOTAN [Suspect]
     Route: 048
     Dates: start: 20071214
  3. CLARITHROMYCIN [Suspect]
     Route: 048
     Dates: start: 20071214
  4. PERDIPINE LA [Suspect]
     Route: 048
     Dates: start: 20071214
  5. RADEN [Suspect]
     Route: 048
     Dates: start: 20071214
  6. MUCODYNE [Suspect]
     Route: 048
     Dates: start: 20071214
  7. MUCOSTA [Suspect]
     Route: 048
  8. KINEDAK [Suspect]
     Route: 048
  9. AMARYL [Suspect]
     Route: 048
  10. KIPRES [Suspect]
     Route: 048
  11. IPD [Suspect]
     Route: 048
  12. SLO-BID [Suspect]
     Route: 048

REACTIONS (2)
  - ASTHMA [None]
  - CONVULSION [None]
